FAERS Safety Report 4943199-0 (Version None)
Quarter: 2006Q1

REPORT INFORMATION
  Report Type: 
  Country: None (occurrence: None)
  Receive Date: 20060314
  Receipt Date: 20060202
  Transmission Date: 20060701
  Serious: Yes (Other)
  Sender: FDA-Public Use
  Company Number: US-MERCK-0602USA01616

PATIENT
  Age: 47 Year
  Sex: Female
  Weight: 86 kg

DRUGS (2)
  1. VIOXX [Suspect]
     Indication: PAIN
     Route: 048
     Dates: start: 20010301, end: 20010401
  2. VIOXX [Suspect]
     Indication: RESPIRATORY DISORDER
     Route: 048
     Dates: start: 20010301, end: 20010401

REACTIONS (3)
  - CEREBROVASCULAR ACCIDENT [None]
  - INJURY [None]
  - UTERINE LEIOMYOMA [None]
